FAERS Safety Report 4444992-3 (Version None)
Quarter: 2004Q3

REPORT INFORMATION
  Report Type: 
  Country: None (occurrence: None)
  Receive Date: 20040908
  Receipt Date: 20040908
  Transmission Date: 20050211
  Serious: Yes (Hospitalization)
  Sender: FDA-Public Use
  Company Number: None

PATIENT
  Age: 83 Year
  Sex: Male

DRUGS (13)
  1. FUROSEMIDE [Suspect]
     Indication: CARDIAC FAILURE CONGESTIVE
     Dosage: 40 MG QD
     Dates: start: 20000501
  2. FOSINOPRIL SODIUM [Concomitant]
  3. METOPROLOL [Concomitant]
  4. OXYBUTYNIN CHLORIDE [Concomitant]
  5. DIAZEPAM [Concomitant]
  6. OMEPRAZOLE [Concomitant]
  7. ASPIRIN [Concomitant]
  8. GUAIFENESIN [Concomitant]
  9. ALLOPURINOL [Concomitant]
  10. COLCHICINE [Concomitant]
  11. SERTRALINE HYDROCHLORIDE [Concomitant]
  12. ZOCOR [Concomitant]
  13. CLARITIN [Concomitant]

REACTIONS (2)
  - ORTHOSTATIC HYPOTENSION [None]
  - SYNCOPE [None]
